FAERS Safety Report 4608705-4 (Version None)
Quarter: 2005Q1

REPORT INFORMATION
  Report Type: 
  Country: None (occurrence: None)
  Receive Date: 20050315
  Receipt Date: 20041215
  Transmission Date: 20050727
  Serious: Yes (Other)
  Sender: FDA-Public Use
  Company Number: AU-ROCHE-396258

PATIENT
  Age: 51 Year
  Sex: Female

DRUGS (1)
  1. XENICAL [Suspect]
     Dosage: 120 MG TABS.
     Route: 048
     Dates: start: 20050110, end: 20050117

REACTIONS (3)
  - ABDOMINAL PAIN UPPER [None]
  - DEPRESSION [None]
  - DIARRHOEA [None]
